FAERS Safety Report 17848511 (Version 1)
Quarter: 2020Q2

REPORT INFORMATION
  Report Type: Spontaneous
  Country: SA (occurrence: SA)
  Receive Date: 20200602
  Receipt Date: 20200602
  Transmission Date: 20200714
  Serious: Yes (Hospitalization, Other)
  Sender: FDA-Public Use
  Company Number: SA-VISTAPHARM, INC.-VER202005-001045

PATIENT
  Age: 11 Year
  Sex: Female

DRUGS (6)
  1. HYDROXYCHLOROQUINE [Concomitant]
     Active Substance: HYDROXYCHLOROQUINE
     Indication: PULMONARY ALVEOLAR HAEMORRHAGE
     Dosage: UNKNOWN
  2. PREDNISOLONE. [Suspect]
     Active Substance: PREDNISOLONE
     Dosage: 10-20 MG EVERY ALTERNATE DAY
     Route: 048
     Dates: start: 201502
  3. PREDNISOLONE. [Suspect]
     Active Substance: PREDNISOLONE
     Dosage: LOW ORAL DOSE ?10-20 MG EVERY ALTERNATE DAY
     Route: 048
     Dates: start: 201502
  4. PREDNISOLONE. [Suspect]
     Active Substance: PREDNISOLONE
     Indication: PULMONARY ALVEOLAR HAEMORRHAGE
     Dosage: 2 MG/KG/DAY FOR 5 DAYS (JULY-NOVEMBER 2014)
     Route: 048
     Dates: start: 2014
  5. METHYLPREDNISOLONE. [Concomitant]
     Active Substance: METHYLPREDNISOLONE
     Indication: RESPIRATORY FAILURE
     Dosage: FOR 3 DAYS
  6. AZATHIOPRINE. [Concomitant]
     Active Substance: AZATHIOPRINE
     Indication: PULMONARY ALVEOLAR HAEMORRHAGE
     Dosage: UNKNOWN

REACTIONS (2)
  - Pulmonary vasculitis [Unknown]
  - Pulmonary embolism [Recovering/Resolving]
